FAERS Safety Report 4426960-0 (Version None)
Quarter: 2004Q3

REPORT INFORMATION
  Report Type: 
  Country: None (occurrence: None)
  Receive Date: 20040726
  Receipt Date: 20040420
  Transmission Date: 20050211
  Serious: No
  Sender: FDA-Public Use
  Company Number: USA040465489

PATIENT
  Age: 87 Year
  Sex: Female

DRUGS (1)
  1. FORTEO [Suspect]
     Dates: start: 20040301

REACTIONS (3)
  - DEHYDRATION [None]
  - FEELING ABNORMAL [None]
  - NAUSEA [None]
